FAERS Safety Report 15881007 (Version 1)
Quarter: 2019Q1

REPORT INFORMATION
  Report Type: Spontaneous
  Country: SE (occurrence: SE)
  Receive Date: 20190128
  Receipt Date: 20190128
  Transmission Date: 20190417
  Serious: Yes (Other)
  Sender: FDA-Public Use
  Company Number: SE-NOVOPROD-643238

PATIENT
  Age: 73 Year
  Sex: Male

DRUGS (12)
  1. ENALAPRIL [Concomitant]
     Active Substance: ENALAPRIL
     Dosage: 10 MG, QD
     Dates: start: 20181120
  2. OZEMPIC [Suspect]
     Active Substance: SEMAGLUTIDE
     Dosage: 0.5 MG, QW
     Route: 058
     Dates: start: 20181224, end: 20181231
  3. GLYTRIN                            /00003201/ [Concomitant]
     Dosage: SUBLINGUAL SPRAY
     Route: 060
     Dates: start: 20180126
  4. CLOPIDOGREL [Concomitant]
     Active Substance: CLOPIDOGREL BISULFATE
     Dosage: UNK
     Dates: start: 20180127
  5. ALVEDON [Concomitant]
     Active Substance: ACETAMINOPHEN
     Dates: start: 20181203
  6. LACTULOSE. [Concomitant]
     Active Substance: LACTULOSE
     Dosage: 10-25 ML PER DAY
     Dates: start: 20181120
  7. ATORVASTATIN [Concomitant]
     Active Substance: ATORVASTATIN
     Dosage: 80 MG, QD
     Dates: start: 20181024
  8. TROMBYL [Concomitant]
     Active Substance: ASPIRIN
     Dosage: 75 MG, QD
     Dates: start: 20180127
  9. FINASTERIDE. [Concomitant]
     Active Substance: FINASTERIDE
     Dosage: 5 MG, QD
     Dates: start: 20180212
  10. BISOPROLOL [Concomitant]
     Active Substance: BISOPROLOL
     Dosage: 10 MG, QD
     Dates: start: 20181024
  11. METFORMIN [Concomitant]
     Active Substance: METFORMIN HYDROCHLORIDE
     Dosage: AT EVENING
     Dates: start: 20181024
  12. OZEMPIC [Suspect]
     Active Substance: SEMAGLUTIDE
     Indication: ARTERIOSCLEROSIS
     Dosage: 0.25 MG, QW
     Route: 058
     Dates: start: 20181125, end: 20181223

REACTIONS (1)
  - Visual impairment [Not Recovered/Not Resolved]

NARRATIVE: CASE EVENT DATE: 20181224
